FAERS Safety Report 6966951-9 (Version None)
Quarter: 2010Q3

REPORT INFORMATION
  Report Type: 
  Country: None (occurrence: None)
  Receive Date: 20100906
  Receipt Date: 20100902
  Transmission Date: 20110219
  Serious: Yes (Hospitalization, Other)
  Sender: FDA-Public Use
  Company Number: US-BRISTOL-MYERS SQUIBB COMPANY-15207103

PATIENT
  Age: 82 Year
  Sex: Female

DRUGS (4)
  1. ERBITUX [Suspect]
     Indication: COLON CANCER METASTATIC
     Dosage: DOSE:WEEK1-400MG/M2X1.57 628MG OVER 90MIN, FROM WEEK2 250MG/M2X1.57 390MG OVER 60MIN EVERY 2WKS
     Route: 042
     Dates: start: 20100623, end: 20100708
  2. LEUCOVORIN CALCIUM [Suspect]
  3. FLUOROURACIL [Suspect]
  4. OXALIPLATIN [Suspect]

REACTIONS (7)
  - CHILLS [None]
  - CYANOSIS [None]
  - DIARRHOEA [None]
  - HYPOMAGNESAEMIA [None]
  - LIVEDO RETICULARIS [None]
  - METABOLIC ACIDOSIS [None]
  - WHEEZING [None]
